FAERS Safety Report 8906366 (Version 1)
Quarter: 2012Q4

REPORT INFORMATION
  Report Type: Spontaneous
  Country: US (occurrence: None)
  Receive Date: 20121108
  Receipt Date: 20121108
  Transmission Date: 20130627
  Serious: Yes (Other)
  Sender: FDA-Public Use
  Company Number: DKLU1086118

PATIENT
  Age: 24 Month
  Sex: Male

DRUGS (5)
  1. SABRIL [Suspect]
     Indication: INFANTILE SPASMS
     Route: 048
     Dates: start: 20120315
  2. SABRIL [Suspect]
     Indication: INFANTILE SPASMS
     Route: 048
  3. SABRIL [Suspect]
     Indication: INFANTILE SPASMS
     Route: 048
  4. SABRIL [Suspect]
     Indication: INFANTILE SPASMS
     Route: 048
  5. TOPAMAX [Concomitant]

REACTIONS (1)
  - Surgery [None]
